FAERS Safety Report 5372453-6 (Version None)
Quarter: 2007Q2

REPORT INFORMATION
  Report Type: 
  Country: None (occurrence: None)
  Receive Date: 20070625
  Receipt Date: 20070612
  Transmission Date: 20071010
  Serious: Yes (Other)
  Sender: FDA-Public Use
  Company Number: B0475354A

PATIENT
  Age: 17 Year
  Sex: Female

DRUGS (12)
  1. PAROXETINE HYDROCHLORIDE (FORMULATION UNKNOWN) (GENERIC) (PAROXETINE H [Suspect]
  2. BUSPIRONE (FORMULATION UNKNOWN) (BUSPIRONE) [Suspect]
  3. VALPORATE SODIUM [Concomitant]
  4. CLONAZEPAM [Concomitant]
  5. ELECTROCONVULSIVE THERAPY [Concomitant]
  6. HALPERIDOL [Concomitant]
  7. RISPERIDONE [Concomitant]
  8. LITHIUM CARBONATE [Concomitant]
  9. CABAMAZEPINE [Concomitant]
  10. FLUOXETINE [Concomitant]
  11. BENZTROPINE [Concomitant]
  12. RANITIDINE HYDROCHLORIDE [Concomitant]

REACTIONS (18)
  - AGGRESSION [None]
  - AGITATION [None]
  - ANOREXIA [None]
  - CONFUSIONAL STATE [None]
  - DISTURBANCE IN ATTENTION [None]
  - DRUG INTERACTION [None]
  - DRUG WITHDRAWAL SYNDROME [None]
  - FATIGUE [None]
  - INCORRECT DOSE ADMINISTERED [None]
  - INSOMNIA [None]
  - IRRITABILITY [None]
  - MANIA [None]
  - NIGHTMARE [None]
  - PSYCHOTIC DISORDER [None]
  - RESTLESSNESS [None]
  - SLEEP DISORDER [None]
  - THINKING ABNORMAL [None]
  - TREMOR [None]
